FAERS Safety Report 5520569-3 (Version None)
Quarter: 2007Q4

REPORT INFORMATION
  Report Type: 
  Country: None (occurrence: None)
  Receive Date: 20071119
  Receipt Date: 20071106
  Transmission Date: 20080405
  Serious: Yes (Death, Hospitalization)
  Sender: FDA-Public Use
  Company Number: AU-PFIZER INC-2007067469

PATIENT
  Sex: Male

DRUGS (7)
  1. SUTENT [Suspect]
  2. VERAPAMIL [Concomitant]
     Route: 048
  3. SIMVASTATIN [Concomitant]
     Route: 048
  4. LATANOPROST [Concomitant]
  5. ACETYLSALICYLIC ACID SRT [Concomitant]
     Route: 048
  6. SERETIDE [Concomitant]
  7. TIOTROPIUM [Concomitant]

REACTIONS (8)
  - CONFUSIONAL STATE [None]
  - CONSTIPATION [None]
  - DEHYDRATION [None]
  - LETHARGY [None]
  - PYREXIA [None]
  - RESPIRATORY FAILURE [None]
  - THERAPEUTIC AGENT TOXICITY [None]
  - YELLOW SKIN [None]
